FAERS Safety Report 10365035 (Version 1)
Quarter: 2014Q1

REPORT INFORMATION
  Report Type: Spontaneous
  Country: US (occurrence: None)
  Receive Date: 20140306
  Receipt Date: 20140306
  Transmission Date: 20141002
  Serious: Yes (Other)
  Sender: FDA-Public Use
  Company Number: 163-21880-13106432

PATIENT
  Age: 69 Year
  Sex: Male
  Weight: 98.88 kg

DRUGS (9)
  1. REVLIMID (LENALIDOMIDE)(15 MILLIGRAM, CAPSULES) [Suspect]
     Indication: PLASMA CELL MYELOMA
     Dosage: 21 IN 28 D, PO
     Route: 048
     Dates: start: 20130321
  2. ALLOPURINOL(ALLOPURINOL)(TABLETS) [Concomitant]
  3. CHERATUSSIN AC(CHERATUSSIN AC)(LIQUID) [Concomitant]
  4. COUMADIN(WARFARIN SODIUM)(TABLETS) [Concomitant]
  5. DEXAMETHASONE(DEXAMETHASONE)(4 MILLIGRAM, TABLETS) [Concomitant]
  6. DUONEB(COMBIVENT)(AEROSOL FOR INHALATION) [Concomitant]
  7. MELOXICAM(MELOXICAM)(7.5 MILLIGRAM, TABLETS) [Concomitant]
  8. METOPROLOL SUCCINATE(METOPROLOL SUCCINATE)(25 MILLIGRAM, TABLETS) [Concomitant]
  9. SIMVASTATIN(SIMVASTATIN)(20 MILLIGRAM, TABLETS) [Concomitant]

REACTIONS (1)
  - Pancytopenia [None]
